FAERS Safety Report 10991124 (Version 3)
Quarter: 2015Q2

REPORT INFORMATION
  Report Type: Report from Study
  Country: JP (occurrence: JP)
  Receive Date: 20150406
  Receipt Date: 20150626
  Transmission Date: 20150821
  Serious: Yes (Other)
  Sender: FDA-Public Use
  Company Number: JP-AMGEN-JPNCT2015032976

PATIENT
  Age: 57 Year
  Sex: Male
  Weight: 94 kg

DRUGS (51)
  1. LULLAN [Concomitant]
     Active Substance: PEROSPIRONE HYDROCHLORIDE
     Indication: SCHIZOPHRENIA
     Dosage: UNK
     Route: 048
  2. VOLTAREN [Concomitant]
     Active Substance: DICLOFENAC SODIUM
     Indication: PROPHYLAXIS
     Dosage: UNK
     Route: 065
  3. MIRACLID [Concomitant]
     Active Substance: ULINASTATIN
     Indication: PROPHYLAXIS
     Dosage: UNK
     Route: 065
  4. PACETCOOL [Concomitant]
     Active Substance: CEFOTIAM HYDROCHLORIDE
     Indication: ABSCESS NECK
     Dosage: UNK
     Route: 042
  5. CARBAZOCHROME SULFONATE NA [Concomitant]
     Indication: ABSCESS NECK
     Dosage: UNK
     Route: 048
  6. ARTANE [Concomitant]
     Active Substance: TRIHEXYPHENIDYL HYDROCHLORIDE
     Indication: SCHIZOPHRENIA
     Dosage: UNK
     Route: 048
  7. ABILIFY [Concomitant]
     Active Substance: ARIPIPRAZOLE
     Indication: SCHIZOPHRENIA
     Dosage: UNK
     Route: 065
  8. DIOVAN [Concomitant]
     Active Substance: VALSARTAN
     Indication: HYPERTENSION
     Dosage: UNK
     Route: 048
  9. PNEUMOVAX 23 [Concomitant]
     Active Substance: PNEUMOCOCCAL VACCINE, POLYVALENT 23
     Indication: PROPHYLAXIS
     Dosage: UNK
     Route: 065
  10. VENOGLOBULIN [Concomitant]
     Active Substance: HUMAN IMMUNOGLOBULIN G
     Indication: IMMUNE THROMBOCYTOPENIC PURPURA
     Dosage: 40 MG/KG, UNK
     Route: 065
     Dates: start: 20130712, end: 20130716
  11. HUMULIN R [Concomitant]
     Active Substance: INSULIN HUMAN
     Indication: DIABETES MELLITUS
     Dosage: UNK
     Route: 065
  12. ZYPREXA [Concomitant]
     Active Substance: OLANZAPINE
     Indication: SCHIZOPHRENIA
     Dosage: UNK
     Route: 065
  13. ENTERONON-R [Concomitant]
     Active Substance: PROBIOTICS NOS
     Indication: CONSTIPATION
     Dosage: UNK
     Route: 048
  14. BAKTAR [Concomitant]
     Active Substance: SULFAMETHOXAZOLE\TRIMETHOPRIM
     Indication: PROPHYLAXIS
     Dosage: UNK
     Route: 048
  15. AMLODIN [Concomitant]
     Active Substance: AMLODIPINE BESYLATE
     Indication: HYPERTENSION
     Dosage: UNK
     Route: 048
  16. CEFAZOLIN NA [Concomitant]
     Indication: PROPHYLAXIS
     Dosage: UNK
     Route: 065
  17. PREDONINE [Suspect]
     Active Substance: PREDNISOLONE\PREDNISOLONE ACETATE\PREDNISOLONE SODIUM SUCCINATE
     Indication: IMMUNE THROMBOCYTOPENIC PURPURA
     Dosage: 5 MG, UNK
     Route: 048
     Dates: start: 20130627, end: 20131122
  18. SOL-MELCORT [Concomitant]
     Active Substance: METHYLPREDNISOLONE SODIUM SUCCINATE
     Indication: IMMUNE THROMBOCYTOPENIC PURPURA
     Dosage: 1000 MG, UNK
     Route: 065
     Dates: start: 20130701, end: 20130718
  19. FENTANYL. [Concomitant]
     Active Substance: FENTANYL
     Indication: ABSCESS NECK
     Dosage: UNK
     Route: 065
  20. MUCODYNE [Concomitant]
     Active Substance: CARBOCYSTEINE
     Indication: ABSCESS NECK
     Dosage: UNK
     Route: 048
  21. NEUART [Concomitant]
     Indication: PROPHYLAXIS
     Dosage: UNK
     Route: 065
  22. TAKEPRON [Concomitant]
     Active Substance: LANSOPRAZOLE
     Indication: PROPHYLAXIS
     Dosage: UNK
     Route: 042
  23. PROPOFOL. [Concomitant]
     Active Substance: PROPOFOL
     Indication: ABSCESS NECK
     Dosage: UNK
     Route: 065
  24. NICARDIPINE HYDROCHLORIDE. [Concomitant]
     Active Substance: NICARDIPINE HYDROCHLORIDE
     Indication: HYPERTENSION
     Dosage: UNK
     Route: 065
  25. REBAMIPIDE [Concomitant]
     Active Substance: REBAMIPIDE
     Indication: SCHIZOPHRENIA
     Dosage: UNK
     Route: 065
  26. ENTERONON-R [Concomitant]
     Active Substance: PROBIOTICS NOS
     Route: 048
  27. NOREPINEPHRINE [Concomitant]
     Active Substance: NOREPINEPHRINE\NOREPINEPHRINE BITARTRATE
     Indication: ABSCESS NECK
     Dosage: UNK
     Route: 065
  28. QUETIAPINE [Concomitant]
     Active Substance: QUETIAPINE
     Indication: SCHIZOPHRENIA
     Dosage: UNK
     Route: 048
  29. BISOLVON [Concomitant]
     Active Substance: BROMHEXINE HYDROCHLORIDE
     Indication: ABSCESS NECK
     Dosage: UNK
     Route: 065
  30. LAXOBERON [Concomitant]
     Active Substance: SODIUM PICOSULFATE
     Indication: CONSTIPATION
     Dosage: UNK
     Route: 065
  31. ROZEREM [Concomitant]
     Active Substance: RAMELTEON
     Indication: INSOMNIA
     Dosage: UNK
     Route: 048
  32. RITUXAN [Suspect]
     Active Substance: RITUXIMAB
     Indication: IMMUNE THROMBOCYTOPENIC PURPURA
     Dosage: 700 MG, QWK
     Route: 065
     Dates: start: 20130814, end: 20130905
  33. SULBACILLIN [Concomitant]
     Active Substance: AMPICILLIN SODIUM\SULBACTAM SODIUM
     Indication: ABSCESS NECK
     Dosage: UNK
     Route: 042
  34. INTRALIPOS [Concomitant]
     Active Substance: SOYBEAN OIL
     Indication: ABSCESS NECK
     Dosage: UNK
     Route: 065
  35. BROTIZOLAM [Concomitant]
     Active Substance: BROTIZOLAM
     Indication: SCHIZOPHRENIA
     Dosage: UNK
     Route: 048
  36. LONASEN [Concomitant]
     Active Substance: BLONANSERIN
     Indication: SCHIZOPHRENIA
     Dosage: UNK
     Route: 048
  37. ROMIPLOSTIM - KHK [Suspect]
     Active Substance: ROMIPLOSTIM
     Indication: IMMUNE THROMBOCYTOPENIC PURPURA
     Dosage: 10 MUG/KG, QD
     Route: 058
     Dates: start: 20130709, end: 20130806
  38. GAMMA-GLOBULIN [Concomitant]
     Active Substance: IMMUNE GLOBULIN NOS
     Indication: IMMUNE THROMBOCYTOPENIC PURPURA
     Dosage: 40 MG/KG, UNK
     Route: 065
     Dates: start: 20130626, end: 20130630
  39. MIDAZOLAM [Concomitant]
     Active Substance: MIDAZOLAM\MIDAZOLAM HYDROCHLORIDE
     Indication: ABSCESS NECK
     Dosage: UNK
     Route: 065
  40. OMEPRAZOLE. [Concomitant]
     Active Substance: OMEPRAZOLE
     Indication: PROPHYLAXIS
     Dosage: UNK
     Route: 065
  41. CLINDAMYCIN [Concomitant]
     Active Substance: CLINDAMYCIN\CLINDAMYCIN PHOSPHATE
     Indication: ABSCESS NECK
     Dosage: UNK
     Route: 065
  42. MAGNESIUM OXIDE. [Concomitant]
     Active Substance: MAGNESIUM OXIDE
     Indication: CONSTIPATION
     Dosage: UNK
     Route: 048
  43. SELBEX [Concomitant]
     Active Substance: TEPRENONE
     Indication: PROPHYLAXIS
     Dosage: UNK
     Route: 048
  44. LOXONIN [Concomitant]
     Active Substance: LOXOPROFEN SODIUM
     Indication: PROPHYLAXIS
     Dosage: UNK
     Route: 065
  45. NIPOLAZIN [Concomitant]
     Indication: PROPHYLAXIS
     Dosage: UNK
     Route: 048
  46. REVOLADE [Concomitant]
     Active Substance: ELTROMBOPAG
     Indication: IMMUNE THROMBOCYTOPENIC PURPURA
     Dosage: 50 MG, UNK
     Route: 048
     Dates: start: 20130701, end: 20130708
  47. SANGLOPOR [Concomitant]
     Active Substance: HUMAN IMMUNOGLOBULIN G
     Indication: IMMUNE THROMBOCYTOPENIC PURPURA
     Dosage: 40 MG, UNK
     Route: 065
     Dates: start: 20131023, end: 20131027
  48. FULCALIQ [Concomitant]
     Active Substance: AMINO ACIDS\CARBOHYDRATES\ELECTROLYTES NOS\VITAMINS
     Indication: ABSCESS NECK
     Dosage: UNK
     Route: 065
  49. PRECEDEX [Concomitant]
     Active Substance: DEXMEDETOMIDINE HYDROCHLORIDE
     Indication: ABSCESS NECK
     Dosage: UNK
     Route: 065
  50. BFLUID [Concomitant]
     Active Substance: AMINO ACIDS\DEXTROSE\ELECTROLYTES NOS\VITAMINS
     Indication: ABSCESS NECK
     Dosage: UNK
     Route: 065
  51. AKINETON [Concomitant]
     Active Substance: BIPERIDEN HYDROCHLORIDE
     Indication: SCHIZOPHRENIA
     Dosage: UNK
     Route: 065

REACTIONS (5)
  - Rash [Recovered/Resolved]
  - Splenic vein thrombosis [Recovered/Resolved]
  - Upper respiratory tract inflammation [Recovered/Resolved]
  - Melaena [Recovering/Resolving]
  - Cerebral haemorrhage [Recovering/Resolving]

NARRATIVE: CASE EVENT DATE: 20130811
